FAERS Safety Report 8243328-X (Version None)
Quarter: 2012Q1

REPORT INFORMATION
  Report Type: 
  Country: None (occurrence: None)
  Receive Date: 20120329
  Receipt Date: 20120319
  Transmission Date: 20120608
  Serious: Yes (Death)
  Sender: FDA-Public Use
  Company Number: US-ROCHE-1047486

PATIENT
  Sex: Female
  Weight: 96.248 kg

DRUGS (2)
  1. AVASTIN [Suspect]
     Indication: GLIOBLASTOMA MULTIFORME
     Route: 042
     Dates: start: 20110912, end: 20120216
  2. TEMOZOLOMIDE [Suspect]
     Indication: CHEMOTHERAPY
     Dosage: 5/28 DAYS
     Route: 048
     Dates: start: 20110912, end: 20120217

REACTIONS (1)
  - DEATH [None]
